FAERS Safety Report 8566327 (Version 4)
Quarter: 2012Q4

REPORT INFORMATION
  Report Type: 
  Country: JP (occurrence: JP)
  Receive Date: 20120517
  Receipt Date: 20121121
  Transmission Date: 20130627
  Serious: Yes (Life-Threatening)
  Sender: FDA-Public Use
  Company Number: JP-ASTELLAS-2012US004705

PATIENT
  Age: 67 Year
  Sex: Female

DRUGS (28)
  1. AMBISOME [Suspect]
     Indication: DEVICE RELATED INFECTION
     Dosage: 100 mg, UID/QD
     Route: 042
     Dates: start: 20120425, end: 20120504
  2. AMBISOME [Suspect]
     Indication: FUNGAL INFECTION
  3. MEROPEN [Suspect]
     Indication: MENINGITIS BACTERIAL
     Dosage: 0.5 g, UID/QD
     Route: 042
     Dates: start: 20120117, end: 20120216
  4. MEROPEN [Suspect]
     Indication: PSOAS ABSCESS
     Dosage: 1 g, UID/QD
     Route: 042
     Dates: start: 20120411, end: 20120420
  5. MEROPEN [Suspect]
     Dosage: 2 g, UID/QD
     Route: 042
     Dates: start: 20120427, end: 20120506
  6. VANCOMYCIN HYDROCHLORIDE [Suspect]
     Indication: PRODUCT USED FOR UNKNOWN INDICATION
     Dosage: 0.5 mg, UID/QD
     Route: 065
     Dates: start: 20120206, end: 20120215
  7. VANCOMYCIN HYDROCHLORIDE [Suspect]
     Dosage: 0.5 mg, UID/QD
     Route: 065
     Dates: start: 20120309, end: 20120409
  8. VANCOMYCIN HYDROCHLORIDE [Suspect]
     Dosage: UNK
     Route: 065
     Dates: start: 20120427
  9. CLINDAMYCIN PHOSPHATE [Suspect]
     Indication: PRODUCT USED FOR UNKNOWN INDICATION
     Dosage: 240 mg, UID/QD
     Route: 065
     Dates: start: 20120411, end: 20120506
  10. PYRINAZIN [Suspect]
     Indication: ANTIPYRESIS
     Dosage: UNK
     Route: 065
     Dates: start: 2012, end: 20120507
  11. PYRINAZIN [Suspect]
     Indication: ANALGESIC THERAPY
  12. DEPAKENE [Suspect]
     Indication: CONVULSION
     Dosage: 400 mg, UID/QD
     Route: 065
     Dates: start: 20120413, end: 20120507
  13. LEPETAN [Suspect]
     Indication: PRODUCT USED FOR UNKNOWN INDICATION
     Dosage: UNK
     Route: 065
  14. ALFAROL [Concomitant]
     Indication: OSTEOPOROSIS
     Dosage: 0.5 UNK, UID/QD
     Route: 065
     Dates: start: 20120419, end: 20120507
  15. TAKEPRON [Concomitant]
     Indication: GASTRIC ULCER
     Dosage: UNK
     Route: 065
     Dates: start: 20120321, end: 20120507
  16. BIOFERMIN                          /00275501/ [Concomitant]
     Indication: PROPHYLAXIS AGAINST DIARRHOEA
     Dosage: 3 g, UID/QD
     Route: 065
     Dates: start: 20120419, end: 20120507
  17. PRODIF [Concomitant]
     Indication: PRODUCT USED FOR UNKNOWN INDICATION
     Dosage: UNK
     Route: 042
  18. LENDORMIN [Concomitant]
     Indication: INSOMNIA
     Dosage: 0.25 mg, UID/QD
     Route: 065
     Dates: start: 20120421
  19. ALBUMIN TANNATE [Concomitant]
     Indication: PROPHYLAXIS AGAINST DIARRHOEA
     Dosage: 1 g, UID/QD
     Route: 065
     Dates: start: 20120427, end: 20120507
  20. RED BLOOD CELLS [Concomitant]
     Indication: PRODUCT USED FOR UNKNOWN INDICATION
     Dosage: UNK
     Route: 065
     Dates: start: 20120119, end: 20120601
  21. VICCILLIN                          /00000501/ [Concomitant]
     Indication: PRODUCT USED FOR UNKNOWN INDICATION
     Dosage: UNK
     Route: 065
     Dates: start: 20120217, end: 20120410
  22. ROCEPHIN [Concomitant]
     Indication: PRODUCT USED FOR UNKNOWN INDICATION
     Dosage: UNK
     Route: 065
     Dates: start: 20120217, end: 20120410
  23. ISONIAZID [Concomitant]
     Indication: PRODUCT USED FOR UNKNOWN INDICATION
     Dosage: UNK
     Route: 065
     Dates: start: 20120307, end: 201204
  24. RIFAMPICIN [Concomitant]
     Indication: PRODUCT USED FOR UNKNOWN INDICATION
     Dosage: UNK
     Route: 065
     Dates: start: 20120307, end: 201204
  25. PYRAMIDE [Concomitant]
     Indication: PRODUCT USED FOR UNKNOWN INDICATION
     Dosage: UNK
     Route: 065
     Dates: start: 20120316, end: 201204
  26. ETHAMBUTOL HYDROCHLORIDE [Concomitant]
     Indication: PRODUCT USED FOR UNKNOWN INDICATION
     Dosage: UNK
     Route: 065
     Dates: start: 20120316, end: 201204
  27. SELENICA-R [Concomitant]
     Indication: PRODUCT USED FOR UNKNOWN INDICATION
     Dosage: UNK
     Route: 065
     Dates: start: 20120407, end: 20120412
  28. PREDONINE                          /00016201/ [Concomitant]
     Indication: PRODUCT USED FOR UNKNOWN INDICATION
     Dosage: UNK
     Route: 065
     Dates: start: 20120503, end: 20120507

REACTIONS (1)
  - Toxic epidermal necrolysis [Recovered/Resolved]
